FAERS Safety Report 6017567-2 (Version None)
Quarter: 2008Q4

REPORT INFORMATION
  Report Type: 
  Country: None (occurrence: None)
  Receive Date: 20081219
  Receipt Date: 20081209
  Transmission Date: 20090506
  Serious: Yes (Congenital Anomaly)
  Sender: FDA-Public Use
  Company Number: B0550619A

PATIENT

DRUGS (1)
  1. PAROXETINE HCL [Suspect]
     Dosage: TRANSPLACENTARY

REACTIONS (2)
  - EAGLE BARRETT SYNDROME [None]
  - MATERNAL DRUGS AFFECTING FOETUS [None]
